FAERS Safety Report 6920939-2 (Version None)
Quarter: 2010Q3

REPORT INFORMATION
  Report Type: 
  Country: None (occurrence: None)
  Receive Date: 20100812
  Receipt Date: 20100731
  Transmission Date: 20110219
  Serious: Yes (Other)
  Sender: FDA-Public Use
  Company Number: US-PFIZER INC-2010082538

PATIENT
  Sex: Male

DRUGS (1)
  1. CHANTIX [Suspect]
     Dosage: UNK
     Route: 048

REACTIONS (7)
  - ABNORMAL DREAMS [None]
  - DRY MOUTH [None]
  - FEELING ABNORMAL [None]
  - INFECTION [None]
  - OROPHARYNGEAL PAIN [None]
  - PHARYNGITIS [None]
  - STOMATITIS [None]
